FAERS Safety Report 8276032-2 (Version None)
Quarter: 2012Q2

REPORT INFORMATION
  Report Type: 
  Country: None (occurrence: None)
  Receive Date: 20120412
  Receipt Date: 20120404
  Transmission Date: 20120825
  Serious: Yes (Other)
  Sender: FDA-Public Use
  Company Number: GB-ACCORD-012744

PATIENT
  Age: 49 Year
  Sex: Female
  Weight: 70 kg

DRUGS (10)
  1. CHLORPHENIRAMINE MALEATE [Concomitant]
     Route: 042
  2. PACLITAXEL [Suspect]
     Indication: BREAST CANCER
     Dosage: 315 MG FOR 2 DOSES AND 300 MG FOR 2 DOSES
     Route: 042
     Dates: start: 20110524, end: 20110705
  3. DEXAMETHASONE [Concomitant]
     Dosage: 8 MG
     Route: 048
  4. RANITIDINE [Concomitant]
     Route: 042
  5. DOMPERIDONE [Concomitant]
     Dosage: QDS FOR 3 DAYS THEN PRN
     Route: 048
  6. GRANISETRON [Concomitant]
     Dosage: 2 MG
     Route: 048
  7. BIOTENE [Concomitant]
     Dosage: QDS
  8. PEGFILGRASTIM [Concomitant]
     Route: 058
  9. DEXAMETHASONE [Concomitant]
     Route: 042
  10. DOCUSATE [Concomitant]
     Dosage: 100 MG TO 200 MG
     Route: 048

REACTIONS (4)
  - DYSPNOEA [None]
  - FATIGUE [None]
  - CHEST PAIN [None]
  - CHEST DISCOMFORT [None]
